FAERS Safety Report 14229848 (Version 1)
Quarter: 2017Q4

REPORT INFORMATION
  Report Type: Spontaneous
  Country: US (occurrence: US)
  Receive Date: 20171128
  Receipt Date: 20171128
  Transmission Date: 20180321
  Serious: No
  Sender: FDA-Public Use
  Company Number: US-ANTARES PHARMA, INC.-2016-LIT-ME-0367

PATIENT
  Age: 33 Year
  Sex: Female

DRUGS (3)
  1. METHOTREXATE. [Suspect]
     Active Substance: METHOTREXATE
     Indication: FIBROCYSTIC BREAST DISEASE
     Dosage: 20 MG, QWK
  2. METHOTREXATE. [Suspect]
     Active Substance: METHOTREXATE
     Indication: MASTITIS
     Dosage: 15 MG, QWK
  3. METHOTREXATE. [Suspect]
     Active Substance: METHOTREXATE
     Indication: OFF LABEL USE
     Dosage: 10 MG, QWK

REACTIONS (2)
  - Off label use [Recovered/Resolved]
  - Arthralgia [Recovered/Resolved]
